FAERS Safety Report 5724328-8 (Version None)
Quarter: 2008Q2

REPORT INFORMATION
  Report Type: 
  Country: None (occurrence: None)
  Receive Date: 20080430
  Receipt Date: 20080421
  Transmission Date: 20081010
  Serious: Yes (Hospitalization)
  Sender: FDA-Public Use
  Company Number: BE-PFIZER INC-2008015470

PATIENT
  Sex: Female

DRUGS (16)
  1. SU-011,248 [Suspect]
     Indication: BREAST CANCER
     Route: 048
  2. TAXOTERE [Suspect]
     Indication: BREAST CANCER
     Route: 042
  3. TRASTUZUMAB [Suspect]
     Indication: BREAST CANCER
     Route: 042
  4. DEPAKENE [Concomitant]
     Route: 048
  5. PARACETAMOL [Concomitant]
     Route: 048
     Dates: start: 20080208, end: 20080214
  6. GLAZIDIM [Concomitant]
     Dates: start: 20080208, end: 20080214
  7. TARGOCID [Concomitant]
     Dates: start: 20080208, end: 20080215
  8. DEXTROMETHORPHAN HYDROBROMIDE [Concomitant]
     Dates: start: 20080212, end: 20080219
  9. LASIX [Concomitant]
     Dates: start: 20080214, end: 20080214
  10. LITICAN [Concomitant]
     Dates: start: 20080213, end: 20080216
  11. DIFLUCAN [Concomitant]
     Dates: start: 20080212, end: 20080213
  12. CIPROFLOXACIN [Concomitant]
     Dates: start: 20080215, end: 20080220
  13. NULYTELY [Concomitant]
  14. LORAZEPAM [Concomitant]
     Route: 048
  15. DAFALGAN [Concomitant]
     Route: 048
     Dates: start: 20080130, end: 20080205
  16. DUPHALAC [Concomitant]
     Route: 048
     Dates: start: 20080216, end: 20080218

REACTIONS (2)
  - ANXIETY [None]
  - VIRAL INFECTION [None]
